FAERS Safety Report 4814846-9 (Version None)
Quarter: 2005Q4

REPORT INFORMATION
  Report Type: 
  Country: None (occurrence: None)
  Receive Date: 20051027
  Receipt Date: 20051027
  Transmission Date: 20060501
  Serious: Yes (Hospitalization)
  Sender: FDA-Public Use
  Company Number: None

PATIENT
  Sex: Male
  Weight: 88 kg

DRUGS (1)
  1. CETUXIMAB (400MG/M2) [Suspect]
     Indication: OESOPHAGEAL CARCINOMA
     Dosage: 400 LOADING IV
     Route: 042
     Dates: start: 20051019

REACTIONS (3)
  - ASCITES [None]
  - HYPOTENSION [None]
  - PAIN [None]
